FAERS Safety Report 4832358-3 (Version None)
Quarter: 2005Q4

REPORT INFORMATION
  Report Type: 
  Country: None (occurrence: None)
  Receive Date: 20051121
  Receipt Date: 20051108
  Transmission Date: 20060501
  Serious: Yes (Congenital Anomaly)
  Sender: FDA-Public Use
  Company Number: FR-SOLVAY-00205003778

PATIENT
  Age: 1 Day
  Sex: Male

DRUGS (2)
  1. DILTIAZEM HYDROCHLORIDE [Concomitant]
     Indication: DRUG EXPOSURE DURING PREGNANCY
     Dosage: DAILY DOSE:  UNKNOWN
     Route: 064
     Dates: start: 20050512, end: 20050927
  2. COVERSYL [Suspect]
     Indication: DRUG EXPOSURE DURING PREGNANCY
     Dosage: DAILY DOSE: 1 DOSAGE FORM
     Route: 064
     Dates: start: 20050101, end: 20050927

REACTIONS (5)
  - CAESAREAN SECTION [None]
  - CONGENITAL ANOMALY [None]
  - DRUG EXPOSURE DURING PREGNANCY [None]
  - PATENT DUCTUS ARTERIOSUS [None]
  - PULMONARY HYPERTENSION [None]
